FAERS Safety Report 25591974 (Version 1)
Quarter: 2025Q3

REPORT INFORMATION
  Report Type: Spontaneous
  Country: US (occurrence: US)
  Receive Date: 20250722
  Receipt Date: 20250722
  Transmission Date: 20251021
  Serious: No
  Sender: NOVARTIS
  Company Number: US-ORG100013279-032852

PATIENT
  Sex: Male

DRUGS (1)
  1. LAMISIL [Suspect]
     Active Substance: TERBINAFINE HYDROCHLORIDE
     Indication: Product used for unknown indication
     Route: 065

REACTIONS (6)
  - Balance disorder [Unknown]
  - Arthralgia [Unknown]
  - Asthenia [Unknown]
  - Appetite disorder [Unknown]
  - Fatigue [Unknown]
  - Product use issue [Unknown]
